FAERS Safety Report 6456081-7 (Version None)
Quarter: 2009Q4

REPORT INFORMATION
  Report Type: 
  Country: None (occurrence: None)
  Receive Date: 20091125
  Receipt Date: 20091117
  Transmission Date: 20100525
  Serious: No
  Sender: FDA-Public Use
  Company Number: JP-JNJFOC-20091103897

PATIENT
  Age: 87 Year
  Sex: Male

DRUGS (1)
  1. DUROTEP [Suspect]
     Indication: CANCER PAIN
     Route: 062

REACTIONS (4)
  - APPLICATION SITE PAIN [None]
  - DRUG ADMINISTERED AT INAPPROPRIATE SITE [None]
  - PRURITUS [None]
  - WRONG TECHNIQUE IN DRUG USAGE PROCESS [None]
